FAERS Safety Report 13009894 (Version 1)
Quarter: 2016Q4

REPORT INFORMATION
  Report Type: Spontaneous
  Country: US (occurrence: US)
  Receive Date: 20161208
  Receipt Date: 20161208
  Transmission Date: 20170207
  Serious: Yes (Other)
  Sender: FDA-Public Use
  Company Number: US-BAYER-2016-233165

PATIENT
  Age: 33 Year
  Sex: Female

DRUGS (1)
  1. MIRENA [Suspect]
     Active Substance: LEVONORGESTREL
     Dosage: 20 MCG/24HR, CONT
     Route: 015
     Dates: start: 2010, end: 201406

REACTIONS (14)
  - Night blindness [Unknown]
  - Headache [Unknown]
  - Tunnel vision [Unknown]
  - Visual acuity reduced [Unknown]
  - Tinnitus [Unknown]
  - Loss of consciousness [Unknown]
  - Dizziness [Unknown]
  - Amnesia [Unknown]
  - Vision blurred [Unknown]
  - Vitreous floaters [Unknown]
  - Benign intracranial hypertension [Unknown]
  - Weight increased [Unknown]
  - Neck pain [Unknown]
  - Musculoskeletal pain [Unknown]

NARRATIVE: CASE EVENT DATE: 20131211
